FAERS Safety Report 23718014 (Version 1)
Quarter: 2024Q2

REPORT INFORMATION
  Report Type: Spontaneous
  Country: US (occurrence: None)
  Receive Date: 20240405
  Receipt Date: 20240405
  Transmission Date: 20240715
  Serious: No
  Sender: FDA-Public Use
  Company Number: None

PATIENT
  Age: 65 Year
  Sex: Female

DRUGS (1)
  1. LENALIDOMIDE [Suspect]
     Active Substance: LENALIDOMIDE
     Indication: Follicular lymphoma stage II
     Dosage: ?20MG QD ORAL
     Route: 048
     Dates: start: 20231031

REACTIONS (2)
  - Gingival bleeding [None]
  - Stomatitis [None]

NARRATIVE: CASE EVENT DATE: 20240405
